FAERS Safety Report 5314254-0 (Version None)
Quarter: 2007Q2

REPORT INFORMATION
  Report Type: 
  Country: None (occurrence: None)
  Receive Date: 20070425
  Receipt Date: 20070411
  Transmission Date: 20071010
  Serious: Yes (Other)
  Sender: FDA-Public Use
  Company Number: S07-USA-01562-01

PATIENT
  Age: 74 Year
  Sex: Female

DRUGS (5)
  1. THYROID TAB [Suspect]
     Indication: HYPOTHYROIDISM
     Dosage: 90 MG QD PO
     Route: 048
     Dates: start: 20041001, end: 20040101
  2. THYROID TAB [Suspect]
     Indication: HYPOTHYROIDISM
     Dosage: 60 MG QD PO
     Route: 048
     Dates: start: 20040101
  3. THYROID TAB [Suspect]
     Indication: HYPOTHYROIDISM
     Dosage: 60 MG QD PO
     Route: 048
     Dates: start: 19890101, end: 20041001
  4. VITAMIN CAP [Concomitant]
  5. HERBS (NOS) [Concomitant]

REACTIONS (11)
  - ABDOMINAL PAIN UPPER [None]
  - AUTOIMMUNE THYROIDITIS [None]
  - DRUG DISPENSING ERROR [None]
  - FEELING ABNORMAL [None]
  - FEELING JITTERY [None]
  - INCORRECT DOSE ADMINISTERED [None]
  - MENTAL IMPAIRMENT [None]
  - NAUSEA [None]
  - SENSATION OF FOREIGN BODY [None]
  - TEMPERATURE INTOLERANCE [None]
  - WEIGHT DECREASED [None]
